FAERS Safety Report 18920028 (Version 1)
Quarter: 2021Q1

REPORT INFORMATION
  Report Type: Spontaneous
  Country: SE (occurrence: SE)
  Receive Date: 20210222
  Receipt Date: 20210222
  Transmission Date: 20210420
  Serious: Yes (Other)
  Sender: FDA-Public Use
  Company Number: SE-TEVA-2021-SE-1880895

PATIENT
  Age: 70 Year
  Sex: Male

DRUGS (13)
  1. BEVIPLEX COMP [Concomitant]
  2. PRADAXA [Concomitant]
     Active Substance: DABIGATRAN ETEXILATE MESYLATE
  3. PROPYLESS [Concomitant]
  4. GABAPENTIN 1A FARMA [Concomitant]
     Active Substance: GABAPENTIN
  5. METOPROLOL ORION [Concomitant]
     Active Substance: METOPROLOL
  6. OMEPRAZOL ABECE [Concomitant]
     Active Substance: OMEPRAZOLE
  7. VALACICLOVIR [Suspect]
     Active Substance: VALACYCLOVIR HYDROCHLORIDE
     Indication: HERPES ZOSTER
     Dosage: 500 MG 2+2+2:UNIT DOSE:3000MILLIGRAM
     Route: 048
     Dates: start: 20200828, end: 20200831
  8. ACETYLCYSTEIN MEDA [Concomitant]
     Dosage: VB
  9. ALVEDON FORTE [Concomitant]
     Active Substance: ACETAMINOPHEN
     Dosage: VB
  10. AMLODIPINE [Concomitant]
     Active Substance: AMLODIPINE BESYLATE
  11. CITODON [Concomitant]
     Active Substance: ACETAMINOPHEN\CODEINE PHOSPHATE
     Dosage: VB
  12. LOCOID [Concomitant]
     Active Substance: HYDROCORTISONE BUTYRATE
     Dosage: VB
  13. TERRACORTIL [Concomitant]

REACTIONS (1)
  - Eosinophilia [Recovered/Resolved]

NARRATIVE: CASE EVENT DATE: 20200902
